FAERS Safety Report 12842539 (Version 1)
Quarter: 2016Q4

REPORT INFORMATION
  Report Type: Spontaneous
  Country: US (occurrence: US)
  Receive Date: 20161012
  Receipt Date: 20161012
  Transmission Date: 20170207
  Serious: No
  Sender: FDA-Public Use
  Company Number: None

PATIENT
  Age: 56 Year
  Sex: Female

DRUGS (1)
  1. ABACAVIR. [Suspect]
     Active Substance: ABACAVIR
     Indication: HIV INFECTION

REACTIONS (4)
  - Peripheral coldness [None]
  - Hypoaesthesia [None]
  - Muscle spasms [None]
  - Dizziness [None]

NARRATIVE: CASE EVENT DATE: 20161012
